FAERS Safety Report 9925231 (Version 1)
Quarter: 2014Q1

REPORT INFORMATION
  Report Type: Spontaneous
  Country: US (occurrence: US)
  Receive Date: 20140226
  Receipt Date: 20140226
  Transmission Date: 20141002
  Serious: Yes (Hospitalization)
  Sender: FDA-Public Use
  Company Number: US-BRACCO-009312

PATIENT
  Age: 60 Year
  Sex: Female
  Weight: 80 kg

DRUGS (12)
  1. AMBIEN [Concomitant]
  2. SYNTHROID [Concomitant]
  3. SENNA [Concomitant]
  4. ISOVUE 370 [Suspect]
     Indication: COMPUTERISED TOMOGRAM
     Route: 042
     Dates: start: 20130326, end: 20130326
  5. NITROFURANTOIN [Concomitant]
  6. PREDNISONE [Concomitant]
     Dosage: TAKEN AT 12 NOON
     Route: 048
     Dates: start: 20130325, end: 20130325
  7. PREDNISONE [Concomitant]
     Dosage: TAKEN IN AM PRIOR TO CT
     Route: 048
     Dates: start: 20130326, end: 20130326
  8. PREDNISONE [Concomitant]
     Dosage: TAKEN AT BEDTIME
     Route: 048
     Dates: start: 20130325, end: 20130325
  9. COUMADIN [Concomitant]
  10. ZOLOFT [Concomitant]
  11. OXYCODONE [Concomitant]
  12. PRILOSEC [Concomitant]

REACTIONS (1)
  - Anaphylactic reaction [Recovered/Resolved]
